FAERS Safety Report 7897363-1 (Version None)
Quarter: 2011Q4

REPORT INFORMATION
  Report Type: 
  Country: None (occurrence: None)
  Receive Date: 20111107
  Receipt Date: 20111031
  Transmission Date: 20120403
  Serious: Yes (Other)
  Sender: FDA-Public Use
  Company Number: US-SANOFI-AVENTIS-2011SA068480

PATIENT
  Sex: Male

DRUGS (2)
  1. LANTUS [Suspect]
     Dosage: 75 UNITS IN THE MORNING AND 80 UNITS IN THE EVENING
     Route: 058
     Dates: start: 20100101
  2. SOLOSTAR [Suspect]
     Dates: start: 20100101

REACTIONS (3)
  - DEVICE MALFUNCTION [None]
  - PAIN IN EXTREMITY [None]
  - HAEMORRHAGE [None]
